FAERS Safety Report 25575799 (Version 1)
Quarter: 2025Q3

REPORT INFORMATION
  Report Type: Spontaneous
  Country: EU (occurrence: EU)
  Receive Date: 20250718
  Receipt Date: 20250718
  Transmission Date: 20251020
  Serious: Yes (Other)
  Sender: CATALYST PHARMA
  Company Number: None

PATIENT
  Age: 71 Year
  Sex: Male

DRUGS (6)
  1. FYCOMPA [Suspect]
     Active Substance: PERAMPANEL
     Indication: Status epilepticus
     Dosage: 14 MILLIGRAM(S), 1 IN 24 HOUR
     Route: 048
     Dates: start: 20250502, end: 20250512
  2. GABAPENTIN [Suspect]
     Active Substance: GABAPENTIN
     Indication: Status epilepticus
     Dosage: 800 MILLIGRAM(S), 1 IN 24 HOUR
     Route: 048
     Dates: start: 20250426, end: 20250520
  3. AMOXICILLIN\CLAVULANIC ACID [Suspect]
     Active Substance: AMOXICILLIN\CLAVULANIC ACID
     Indication: Pneumonia bacterial
     Dosage: 6.0 GRAM(S) (2 GRAM(S), 1 IN 8 HOUR)
     Route: 042
     Dates: start: 20250424, end: 20250430
  4. CEFOTAXIME [Suspect]
     Active Substance: CEFOTAXIME SODIUM
     Indication: Pneumonia bacterial
     Dosage: 8.0 GRAM(S) (2 GRAM(S), 1 IN 6 HOUR)
     Route: 042
     Dates: start: 20250504, end: 20250507
  5. ACYCLOVIR [Suspect]
     Active Substance: ACYCLOVIR
     Indication: Encephalitis viral
     Dosage: 2250 MILLIGRAM(S) (750 MILLIGRAM(S), 1 IN 8 HOUR)
     Route: 042
     Dates: start: 20250424, end: 20250430
  6. ERYTHROCIN LACTOBIONATE [Concomitant]
     Active Substance: ERYTHROMYCIN LACTOBIONATE
     Indication: Constipation prophylaxis
     Dosage: 1000 MILLIGRAM(S) (250 MILLIGRAM(S), 1 IN 6 HOUR)
     Route: 042
     Dates: start: 20250504, end: 20250519

REACTIONS (1)
  - Hypertransaminasaemia [Not Recovered/Not Resolved]

NARRATIVE: CASE EVENT DATE: 20250512
